FAERS Safety Report 16088762 (Version 1)
Quarter: 2019Q1

REPORT INFORMATION
  Report Type: Spontaneous
  Country: ES (occurrence: ES)
  Receive Date: 20190319
  Receipt Date: 20190319
  Transmission Date: 20190418
  Serious: Yes (Hospitalization)
  Sender: FDA-Public Use
  Company Number: ES-BAUSCH-BL-2019-007969

PATIENT
  Age: 83 Year
  Sex: Female

DRUGS (6)
  1. SEPTRIN FORTE [Concomitant]
     Active Substance: SULFAMETHOXAZOLE\TRIMETHOPRIM
     Indication: PROPHYLAXIS
     Dosage: 160 MG / 800 MG, 50 TABLETS
     Route: 048
     Dates: start: 20171120
  2. CITALOPRAM VIR [Concomitant]
     Indication: DEPRESSION
     Dosage: 20 MG COMPRESSED TABLETS WITH FILM EFG, 500 TABLETS
     Route: 048
     Dates: start: 20170509
  3. LEDERFOLIN [Concomitant]
     Active Substance: LEUCOVORIN CALCIUM
     Indication: PROPHYLAXIS
     Dosage: 10 TABLETS
     Route: 048
     Dates: start: 20171120
  4. IMBRUVICA [Interacting]
     Active Substance: IBRUTINIB
     Indication: MANTLE CELL LYMPHOMA STAGE IV
     Dosage: 90 HARD CAPSULES
     Route: 048
     Dates: start: 20171120
  5. ACICLOVIR [Concomitant]
     Active Substance: ACYCLOVIR
     Indication: PROPHYLAXIS
     Route: 048
     Dates: start: 20171120
  6. DEXAMETASONA [Suspect]
     Active Substance: DEXAMETHASONE
     Indication: MANTLE CELL LYMPHOMA STAGE IV
     Route: 048
     Dates: start: 20170906

REACTIONS (1)
  - Respiratory syncytial virus infection [Recovered/Resolved]

NARRATIVE: CASE EVENT DATE: 20171223
